FAERS Safety Report 23564575 (Version 1)
Quarter: 2024Q1

REPORT INFORMATION
  Report Type: Spontaneous
  Country: FR (occurrence: FR)
  Receive Date: 20240226
  Receipt Date: 20240226
  Transmission Date: 20240410
  Serious: Yes (Other)
  Sender: FDA-Public Use
  Company Number: FR-AFSSAPS-NC2024000158

PATIENT
  Sex: Female
  Weight: 62 kg

DRUGS (3)
  1. LAMOTRIGINE [Suspect]
     Active Substance: LAMOTRIGINE
     Indication: Depression
     Dosage: 300 MILLIGRAM, ONCE A DAY
     Route: 048
     Dates: start: 2013
  2. NARDIL [Suspect]
     Active Substance: PHENELZINE SULFATE
     Indication: Depression
     Dosage: 60 MILLIGRAM, ONCE A DAY
     Route: 048
     Dates: start: 2013
  3. LEVOTHYROXINE [Suspect]
     Active Substance: LEVOTHYROXINE\LEVOTHYROXINE SODIUM
     Indication: Autoimmune thyroiditis
     Dosage: 88 MICROGRAM, ONCE A DAY
     Route: 048

REACTIONS (2)
  - Segmented hyalinising vasculitis [Not Recovered/Not Resolved]
  - Cutaneous vasculitis [Not Recovered/Not Resolved]

NARRATIVE: CASE EVENT DATE: 20211201
